FAERS Safety Report 25266239 (Version 2)
Quarter: 2025Q2

REPORT INFORMATION
  Report Type: Spontaneous
  Country: US (occurrence: US)
  Receive Date: 20250504
  Receipt Date: 20250528
  Transmission Date: 20250717
  Serious: Yes (Other)
  Sender: SANOFI AVENTIS
  Company Number: US-SA-2025SA123849

PATIENT
  Age: 66 Year
  Sex: Female
  Weight: 90 kg

DRUGS (41)
  1. DUPIXENT [Suspect]
     Active Substance: DUPILUMAB
     Indication: Asthma
     Dosage: 300 MG, QOW
     Route: 058
  2. PREDNISONE [Suspect]
     Active Substance: PREDNISONE
  3. MOUNJARO [Concomitant]
     Active Substance: TIRZEPATIDE
  4. ACTEMRA [Concomitant]
     Active Substance: TOCILIZUMAB
  5. AZITHROMYCIN [Concomitant]
     Active Substance: AZITHROMYCIN
  6. ROSUVASTATIN CALCIUM [Concomitant]
     Active Substance: ROSUVASTATIN CALCIUM
  7. ROPINIROLE [Concomitant]
     Active Substance: ROPINIROLE
     Dosage: UNK, QD
  8. PROTONIX [Concomitant]
     Active Substance: PANTOPRAZOLE SODIUM
  9. BUDESONIDE [Concomitant]
     Active Substance: BUDESONIDE
  10. NYSTATIN [Concomitant]
     Active Substance: NYSTATIN
     Route: 048
  11. SODIUM CHLORIDE [Concomitant]
     Active Substance: SODIUM CHLORIDE
  12. LIDOCAINE [Concomitant]
     Active Substance: LIDOCAINE
  13. EPINEPHRINE [Concomitant]
     Active Substance: EPINEPHRINE
  14. DIPHENHYDRAMINE HYDROCHLORIDE [Concomitant]
     Active Substance: DIPHENHYDRAMINE HYDROCHLORIDE
  15. ACETAMINOPHEN [Concomitant]
     Active Substance: ACETAMINOPHEN
  16. BREZTRI AEROSPHERE [BUDESONIDE;FORMOTEROL FUMARATE;GLYCOPYRRONIUM BROM [Concomitant]
  17. GAMMAGARD LIQUID [Concomitant]
     Active Substance: HUMAN IMMUNOGLOBULIN G
  18. ASTEPRO [Concomitant]
     Active Substance: AZELASTINE HYDROCHLORIDE
  19. VALSARTAN [Concomitant]
     Active Substance: VALSARTAN
  20. LEVSIN SL [Concomitant]
     Active Substance: HYOSCYAMINE SULFATE
     Route: 060
  21. ALBUTEROL SULFATE [Concomitant]
     Active Substance: ALBUTEROL SULFATE
  22. ASPIRIN [Concomitant]
     Active Substance: ASPIRIN
  23. VITAMIN D3 [Concomitant]
     Active Substance: CHOLECALCIFEROL
  24. NITROGLYCERIN [Concomitant]
     Active Substance: NITROGLYCERIN
     Route: 060
  25. SYNTHROID [Concomitant]
     Active Substance: LEVOTHYROXINE SODIUM
  26. GOODY^S EXTRA STRENGTH [Concomitant]
  27. FLUTICASONE PROPIONATE [Concomitant]
     Active Substance: FLUTICASONE PROPIONATE
  28. SINGULAIR [Concomitant]
     Active Substance: MONTELUKAST SODIUM
  29. FLUTICASONE PROPIONATE [Concomitant]
     Active Substance: FLUTICASONE PROPIONATE
  30. CEFDINIR [Concomitant]
     Active Substance: CEFDINIR
  31. MOMETASONE FUROATE [Concomitant]
     Active Substance: MOMETASONE FUROATE
  32. VENTOLIN HFA [Concomitant]
     Active Substance: ALBUTEROL SULFATE
  33. SYMBICORT [Concomitant]
     Active Substance: BUDESONIDE\FORMOTEROL FUMARATE DIHYDRATE
  34. AMBIEN [Concomitant]
     Active Substance: ZOLPIDEM TARTRATE
  35. ROPINIROLE HYDROCHLORIDE [Concomitant]
     Active Substance: ROPINIROLE HYDROCHLORIDE
  36. ALBUTEROL SULFATE [Concomitant]
     Active Substance: ALBUTEROL SULFATE
  37. PREVACID [Concomitant]
     Active Substance: LANSOPRAZOLE
  38. DOXYCYCLINE HYCLATE [Concomitant]
     Active Substance: DOXYCYCLINE HYCLATE
  39. FLONASE ALLERGY RELIEF [Concomitant]
     Active Substance: FLUTICASONE PROPIONATE
  40. MUCINEX [Concomitant]
     Active Substance: GUAIFENESIN
  41. XOLAIR [Concomitant]
     Active Substance: OMALIZUMAB

REACTIONS (3)
  - Steroid diabetes [Unknown]
  - Glycosylated haemoglobin increased [Unknown]
  - Hepatic enzyme increased [Unknown]
